FAERS Safety Report 9408379 (Version 4)
Quarter: 2014Q1

REPORT INFORMATION
  Report Type: Spontaneous
  Country: SE (occurrence: SE)
  Receive Date: 20130718
  Receipt Date: 20140228
  Transmission Date: 20141002
  Serious: Yes (Other)
  Sender: FDA-Public Use
  Company Number: SE-PFIZER INC-2013207089

PATIENT
  Age: 55 Year
  Sex: Female

DRUGS (4)
  1. LIPITOR [Suspect]
     Dosage: 20 MG, 1X/DAY
     Route: 048
     Dates: start: 20030121, end: 20060321
  2. SIMVASTATIN [Suspect]
     Dosage: 20 MG, UNK
     Dates: start: 20060321, end: 20130305
  3. CIPRAMIL [Concomitant]
     Dosage: 10 MG, UNK
  4. IMIGRAN [Concomitant]
     Indication: MIGRAINE
     Dosage: 20 MG/DOSE
     Route: 055

REACTIONS (61)
  - Skin reaction [Recovered/Resolved]
  - Sinusitis [Recovered/Resolved]
  - Throat irritation [Recovered/Resolved]
  - Muscle atrophy [Recovered/Resolved]
  - Myalgia [Recovered/Resolved]
  - Muscle spasms [Recovered/Resolved]
  - Joint stiffness [Recovered/Resolved]
  - Tinnitus [Recovered/Resolved with Sequelae]
  - Sleep disorder [Recovered/Resolved]
  - Fatigue [Unknown]
  - Clostridium difficile infection [Recovered/Resolved]
  - Hearing impaired [Unknown]
  - Amnesia [Recovered/Resolved]
  - Abdominal symptom [Unknown]
  - Chest pain [Unknown]
  - Dysgeusia [Unknown]
  - Weight increased [Unknown]
  - Depression [Unknown]
  - Tendon discomfort [Unknown]
  - Headache [Unknown]
  - Visual impairment [Unknown]
  - Disturbance in attention [Unknown]
  - Sexual dysfunction [Unknown]
  - Palpitations [Unknown]
  - Bronchitis [Unknown]
  - Hyperhidrosis [Unknown]
  - Urinary tract infection [Unknown]
  - Arthritis [Unknown]
  - Dizziness [Unknown]
  - Memory impairment [Unknown]
  - Aggression [Unknown]
  - Condition aggravated [Unknown]
  - Alopecia [Unknown]
  - Pain [Unknown]
  - Arthralgia [Unknown]
  - Arthralgia [Recovered/Resolved]
  - Pain in extremity [Recovered/Resolved]
  - Pain in extremity [Recovered/Resolved]
  - Muscular weakness [Recovered/Resolved]
  - Flatulence [Recovered/Resolved]
  - Diarrhoea [Recovered/Resolved]
  - Constipation [Recovered/Resolved]
  - Gastrooesophageal reflux disease [Recovered/Resolved]
  - Eructation [Recovered/Resolved]
  - White blood cells urine positive [Recovered/Resolved]
  - Pyrexia [Recovered/Resolved]
  - Malaise [Recovered/Resolved]
  - Cheilitis [Recovered/Resolved]
  - Tongue disorder [Recovered/Resolved]
  - Abdominal pain [Recovered/Resolved]
  - Back pain [Recovered/Resolved]
  - Vision blurred [Recovered/Resolved]
  - Hiatus hernia [Unknown]
  - Cough [Unknown]
  - Dysphagia [Unknown]
  - Abdominal pain upper [Unknown]
  - Conjunctivitis allergic [Unknown]
  - Pterygium [Unknown]
  - Migraine with aura [Recovered/Resolved]
  - Nasopharyngitis [Unknown]
  - Pain in extremity [Unknown]
